FAERS Safety Report 6241582-7 (Version None)
Quarter: 2009Q2

REPORT INFORMATION
  Report Type: 
  Country: None (occurrence: None)
  Receive Date: 20090623
  Receipt Date: 20040720
  Transmission Date: 20091009
  Serious: Yes (Hospitalization)
  Sender: FDA-Public Use
  Company Number: DE-ROCHE-373714

PATIENT
  Sex: Male
  Weight: 72 kg

DRUGS (28)
  1. MYCOPHENOLATE MOFETIL [Suspect]
     Route: 048
     Dates: start: 20040602
  2. MYCOPHENOLATE MOFETIL [Suspect]
     Route: 048
     Dates: start: 20040603
  3. MYCOPHENOLATE MOFETIL [Suspect]
     Route: 048
     Dates: start: 20040605
  4. MYCOPHENOLATE MOFETIL [Suspect]
     Route: 048
     Dates: start: 20040615
  5. DACLIZUMAB [Suspect]
     Route: 042
     Dates: start: 20040602, end: 20040602
  6. DACLIZUMAB [Suspect]
     Route: 042
     Dates: start: 20040616
  7. TACROLIMUS [Suspect]
     Route: 048
     Dates: start: 20040602
  8. TACROLIMUS [Suspect]
     Route: 048
     Dates: start: 20040603
  9. URBASON [Suspect]
     Route: 042
     Dates: start: 20040602, end: 20040604
  10. URBASON [Suspect]
     Route: 042
     Dates: start: 20040610, end: 20040615
  11. URBASON [Suspect]
     Route: 048
     Dates: start: 20040605, end: 20040609
  12. URBASON [Suspect]
     Route: 048
     Dates: start: 20040616
  13. AMLODIPINE [Concomitant]
     Route: 048
     Dates: start: 20040606
  14. AMOXICILLIN [Concomitant]
     Route: 048
     Dates: start: 20040615
  15. CARVEDILOL [Concomitant]
     Route: 048
     Dates: start: 20040613
  16. CEFAZOLIN [Concomitant]
     Route: 042
     Dates: start: 20040602, end: 20040607
  17. CEFAZOLIN [Concomitant]
     Route: 042
     Dates: start: 20040624, end: 20040627
  18. DARBEPOETIN ALFA [Concomitant]
     Route: 058
     Dates: start: 20040607
  19. FLUCONAZOLE [Concomitant]
     Route: 048
     Dates: start: 20040611, end: 20040620
  20. FUROSEMID [Concomitant]
     Route: 048
     Dates: start: 20040616, end: 20040625
  21. FUROSEMID [Concomitant]
     Route: 048
     Dates: start: 20040626, end: 20040627
  22. HYDROCHLOROTHIAZIDE [Concomitant]
     Route: 048
     Dates: start: 20040616
  23. IRBESARTAN [Concomitant]
     Route: 048
     Dates: end: 20040602
  24. METRONIDAZOLE [Concomitant]
     Route: 042
     Dates: start: 20040602, end: 20040603
  25. METRONIDAZOLE [Concomitant]
     Route: 042
     Dates: start: 20040625, end: 20040626
  26. MOXONIDINE [Concomitant]
     Route: 048
     Dates: start: 20040604, end: 20040614
  27. PRAVASTATIN [Concomitant]
     Route: 048
     Dates: start: 20040608
  28. VANCOMYCIN [Concomitant]
     Route: 042
     Dates: start: 20040602, end: 20040603

REACTIONS (1)
  - LYMPHOCELE [None]
